FAERS Safety Report 18981695 (Version 1)
Quarter: 2021Q1

REPORT INFORMATION
  Report Type: Spontaneous
  Country: US (occurrence: US)
  Receive Date: 20210308
  Receipt Date: 20210308
  Transmission Date: 20210420
  Serious: Yes (Other)
  Sender: FDA-Public Use
  Company Number: US-UPSHER-SMITH LABORATORIES, LLC-2021USL00090

PATIENT
  Sex: Male

DRUGS (2)
  1. UNSPECIFIED MEDICATIONS [Suspect]
     Active Substance: UNSPECIFIED INGREDIENT
     Indication: TOXICITY TO VARIOUS AGENTS
  2. AMIODARONE HYDROCHLORIDE. [Suspect]
     Active Substance: AMIODARONE HYDROCHLORIDE
     Indication: ATRIAL FIBRILLATION
     Route: 048

REACTIONS (17)
  - Weight decreased [Unknown]
  - Disturbance in attention [Unknown]
  - Unevaluable event [Not Recovered/Not Resolved]
  - Off label use [Unknown]
  - Headache [Not Recovered/Not Resolved]
  - Irritability [Unknown]
  - Restlessness [Unknown]
  - Depression [Unknown]
  - Fatigue [Unknown]
  - Tremor [Not Recovered/Not Resolved]
  - Nervousness [Unknown]
  - Thyroid disorder [Unknown]
  - Blindness [Not Recovered/Not Resolved]
  - Toxicity to various agents [Unknown]
  - Asthenia [Unknown]
  - Dyspnoea [Unknown]
  - Photophobia [Unknown]

NARRATIVE: CASE EVENT DATE: 201502
